FAERS Safety Report 15218553 (Version 2)
Quarter: 2018Q3

REPORT INFORMATION
  Report Type: Spontaneous
  Country: JP (occurrence: JP)
  Receive Date: 20180730
  Receipt Date: 20180828
  Transmission Date: 20181010
  Serious: Yes (Death, Other)
  Sender: FDA-Public Use
  Company Number: JP-009507513-1807JPN002948J

PATIENT

DRUGS (1)
  1. KEYTRUDA [Suspect]
     Active Substance: PEMBROLIZUMAB
     Indication: NON-SMALL CELL LUNG CANCER
     Dosage: UNK
     Route: 041

REACTIONS (7)
  - Decreased appetite [Unknown]
  - Pyrexia [Unknown]
  - Hypopituitarism [Unknown]
  - Dermatitis exfoliative generalised [Unknown]
  - Dry skin [Unknown]
  - Dysgeusia [Unknown]
  - Pneumonia [Fatal]
